FAERS Safety Report 25771185 (Version 1)
Quarter: 2025Q3

REPORT INFORMATION
  Report Type: Spontaneous
  Country: US (occurrence: US)
  Receive Date: 20250908
  Receipt Date: 20250908
  Transmission Date: 20251020
  Serious: No
  Sender: DOMPE FARMACEUTICI
  Company Number: US-FARMAPROD-202504-1077

PATIENT
  Age: 73 Year
  Sex: Female

DRUGS (18)
  1. OXERVATE [Suspect]
     Active Substance: CENEGERMIN-BKBJ
     Indication: Neurotrophic keratopathy
     Route: 047
     Dates: start: 20250327
  2. ARTIFICIAL TEARS [Concomitant]
  3. DICLOFENAC SODIUM [Concomitant]
     Active Substance: DICLOFENAC SODIUM
  4. LEVOTHYROXINE SODIUM [Concomitant]
     Active Substance: LEVOTHYROXINE SODIUM
  5. LIOTHYRONINE SODIUM [Concomitant]
     Active Substance: LIOTHYRONINE SODIUM
  6. PROGESTERONE [Concomitant]
     Active Substance: PROGESTERONE
  7. ALENDRONATE SODIUM [Concomitant]
     Active Substance: ALENDRONATE SODIUM
  8. MELATONIN [Concomitant]
     Active Substance: MELATONIN
  9. VITAMIN B COMPLEX [Concomitant]
     Active Substance: CYANOCOBALAMIN\DEXPANTHENOL\NIACINAMIDE\PYRIDOXINE HYDROCHLORIDE\RIBOFLAVIN 5^-PHOSPHATE SODIUM\THIA
  10. MULTIVITAMIN 50 PLUS [Concomitant]
  11. VITAMIN D2 [Concomitant]
     Active Substance: ERGOCALCIFEROL
  12. TEMAZEPAM [Concomitant]
     Active Substance: TEMAZEPAM
  13. ROSUVASTATIN CALCIUM [Concomitant]
     Active Substance: ROSUVASTATIN CALCIUM
  14. SEREVENT DISKUS [Concomitant]
     Active Substance: SALMETEROL XINAFOATE
  15. GABAPENTIN [Concomitant]
     Active Substance: GABAPENTIN
  16. SERTRALINE HYDROCHLORIDE [Concomitant]
     Active Substance: SERTRALINE HYDROCHLORIDE
  17. METOPROLOL SUCCINATE [Concomitant]
     Active Substance: METOPROLOL SUCCINATE
  18. AMLODIPINE BESYLATE-BENAZEPRIL [Concomitant]

REACTIONS (2)
  - Eye pain [Unknown]
  - Wrong technique in product usage process [Unknown]

NARRATIVE: CASE EVENT DATE: 20250328
